FAERS Safety Report 8232683-2 (Version None)
Quarter: 2012Q1

REPORT INFORMATION
  Report Type: 
  Country: None (occurrence: None)
  Receive Date: 20120323
  Receipt Date: 20120314
  Transmission Date: 20120608
  Serious: Yes (Other)
  Sender: FDA-Public Use
  Company Number: PHHY2012BR023108

PATIENT
  Age: 79 Year
  Sex: Male
  Weight: 62 kg

DRUGS (8)
  1. EXELON [Suspect]
     Indication: FRONTOTEMPORAL DEMENTIA
     Dosage: 4.6 MG/24 HOURS (9 MG/5CM2)
     Route: 062
     Dates: start: 20110101
  2. EXELON [Suspect]
     Dosage: 9.5 MG/24 HOURS (18 MG/10CM2)
     Route: 062
     Dates: start: 20120201
  3. EXELON [Suspect]
     Dosage: 4.6 MG/24 HOURS (2 PATCHES DAILY)
     Route: 062
     Dates: start: 20120301
  4. GABAPENTIN [Concomitant]
     Indication: NEUROPATHY PERIPHERAL
     Dosage: 1 DF, BID
  5. LEVOTHYROXINE SODIUM [Concomitant]
     Indication: THYROID DISORDER
     Dosage: 50 MG, UNK
  6. ATENOLOL AND CHLORTHALIDONE [Concomitant]
     Indication: ANTIPLATELET THERAPY
     Dosage: UNK
  7. LOSARTAN POTASSIUM [Concomitant]
     Indication: BLOOD PRESSURE
     Dosage: UNK
  8. CLONAZEPAM [Concomitant]
     Indication: INSOMNIA
     Dosage: UNK

REACTIONS (10)
  - ORTHOSTATIC HYPOTENSION [None]
  - ROAD TRAFFIC ACCIDENT [None]
  - ABNORMAL BEHAVIOUR [None]
  - NEUROPATHY PERIPHERAL [None]
  - WRONG TECHNIQUE IN DRUG USAGE PROCESS [None]
  - DIZZINESS [None]
  - FATIGUE [None]
  - MEMORY IMPAIRMENT [None]
  - DEPRESSED MOOD [None]
  - SYNCOPE [None]
